FAERS Safety Report 12457428 (Version 1)
Quarter: 2016Q2

REPORT INFORMATION
  Report Type: Spontaneous
  Country: KR (occurrence: KR)
  Receive Date: 20160610
  Receipt Date: 20160610
  Transmission Date: 20160815
  Serious: Yes (Other)
  Sender: FDA-Public Use
  Company Number: KR-009507513-1606KOR000374

PATIENT
  Age: 71 Year
  Sex: Female

DRUGS (1)
  1. BCG LIVE [Suspect]
     Active Substance: BACILLUS CALMETTE-GUERIN SUBSTRAIN TICE LIVE ANTIGEN
     Indication: TRANSITIONAL CELL CARCINOMA

REACTIONS (3)
  - Bladder cancer recurrent [Unknown]
  - Bladder cancer recurrent [Unknown]
  - Bladder cancer recurrent [Recovered/Resolved]

NARRATIVE: CASE EVENT DATE: 201308
